FAERS Safety Report 18689643 (Version 1)
Quarter: 2020Q4

REPORT INFORMATION
  Report Type: Spontaneous
  Country: JP (occurrence: JP)
  Receive Date: 20201231
  Receipt Date: 20201231
  Transmission Date: 20210114
  Serious: Yes (Other)
  Sender: FDA-Public Use
  Company Number: JP-JNJFOC-20201244119

PATIENT
  Age: 48 Year
  Sex: Male

DRUGS (2)
  1. SIRTURO [Suspect]
     Active Substance: BEDAQUILINE FUMARATE
     Indication: TUBERCULOSIS
     Route: 048
     Dates: start: 20181221
  2. LINEZOLID. [Suspect]
     Active Substance: LINEZOLID
     Dosage: DOSE UNKNOWN
     Route: 065

REACTIONS (1)
  - Pancytopenia [Recovered/Resolved]
